FAERS Safety Report 11647667 (Version 2)
Quarter: 2016Q1

REPORT INFORMATION
  Report Type: Spontaneous
  Country: GB (occurrence: GB)
  Receive Date: 20151021
  Receipt Date: 20160311
  Transmission Date: 20160525
  Serious: Yes (Other)
  Sender: FDA-Public Use
  Company Number: GB-AUROBINDO-AUR-APL-2015-09293

PATIENT
  Age: 60 Year
  Sex: Female

DRUGS (7)
  1. OMEPRAZOLE. [Suspect]
     Active Substance: OMEPRAZOLE
     Indication: OESOPHAGITIS
     Dosage: UNK
     Route: 065
  2. WARFARIN [Concomitant]
     Active Substance: WARFARIN
     Indication: ANTIPHOSPHOLIPID SYNDROME
  3. HYDROXYCHLOROQUINE [Concomitant]
     Active Substance: HYDROXYCHLOROQUINE
     Indication: SUBACUTE CUTANEOUS LUPUS ERYTHEMATOSUS
  4. MYCOPHENOLATE MOFETIL. [Concomitant]
     Active Substance: MYCOPHENOLATE MOFETIL
     Indication: SUBACUTE CUTANEOUS LUPUS ERYTHEMATOSUS
     Dosage: 1 G TWICE A DAY
  5. ASPIRIN. [Concomitant]
     Active Substance: ASPIRIN
     Indication: SUBACUTE CUTANEOUS LUPUS ERYTHEMATOSUS
  6. AZATHIOPRINE. [Concomitant]
     Active Substance: AZATHIOPRINE
     Indication: SUBACUTE CUTANEOUS LUPUS ERYTHEMATOSUS
  7. PREDNISOLONE. [Concomitant]
     Active Substance: PREDNISOLONE
     Indication: SUBACUTE CUTANEOUS LUPUS ERYTHEMATOSUS

REACTIONS (7)
  - Antiphospholipid syndrome [Recovered/Resolved]
  - Joint stiffness [Recovered/Resolved]
  - Rash erythematous [Recovered/Resolved]
  - Subacute cutaneous lupus erythematosus [Recovered/Resolved]
  - Transient ischaemic attack [Recovered/Resolved]
  - Fatigue [Recovered/Resolved]
  - Arthritis [Recovered/Resolved]
